FAERS Safety Report 14101184 (Version 1)
Quarter: 2017Q4

REPORT INFORMATION
  Report Type: Spontaneous
  Country: CH (occurrence: CH)
  Receive Date: 20171018
  Receipt Date: 20171018
  Transmission Date: 20180321
  Serious: Yes (Other)
  Sender: FDA-Public Use
  Company Number: CH-CIPLA LTD.-2017CH18368

PATIENT

DRUGS (1)
  1. RISPERIDONE. [Suspect]
     Active Substance: RISPERIDONE
     Indication: AUTISM SPECTRUM DISORDER
     Dosage: 0.25 MG, PER DAY, SOLUTION AT NIGHT
     Route: 048

REACTIONS (2)
  - Acute respiratory distress syndrome [Recovered/Resolved]
  - Stridor [Recovered/Resolved]
